FAERS Safety Report 10376240 (Version 1)
Quarter: 2014Q3

REPORT INFORMATION
  Report Type: Spontaneous
  Country: FR (occurrence: FR)
  Receive Date: 20140811
  Receipt Date: 20140811
  Transmission Date: 20150326
  Serious: Yes (Hospitalization)
  Sender: FDA-Public Use
  Company Number: FR-BRISTOL-MYERS SQUIBB COMPANY-21281456

PATIENT
  Age: 87 Year
  Sex: Female

DRUGS (5)
  1. PARACETAMOL [Concomitant]
     Active Substance: ACETAMINOPHEN
  2. MEGACE [Concomitant]
     Active Substance: MEGESTROL ACETATE
  3. COUMADINE [Suspect]
     Active Substance: WARFARIN SODIUM
     Indication: ATRIAL FIBRILLATION
     Dosage: LAST DOSE:30JUN14; DURATION:2YEARS
     Route: 048
     Dates: start: 2012, end: 20140630
  4. SPASFON [Concomitant]
     Active Substance: PHLOROGLUCINOL
  5. CARDENSIEL [Concomitant]
     Active Substance: BISOPROLOL FUMARATE

REACTIONS (5)
  - Overdose [Unknown]
  - Haemorrhagic anaemia [Unknown]
  - International normalised ratio increased [Recovered/Resolved]
  - Pelvic haematoma [Recovered/Resolved with Sequelae]
  - Inflammation [Unknown]

NARRATIVE: CASE EVENT DATE: 2014
